FAERS Safety Report 15715543 (Version 1)
Quarter: 2018Q4

REPORT INFORMATION
  Report Type: Spontaneous
  Country: FR (occurrence: FR)
  Receive Date: 20181212
  Receipt Date: 20181212
  Transmission Date: 20190205
  Serious: Yes (Hospitalization)
  Sender: FDA-Public Use
  Company Number: FR-009507513-1812FRA002554

PATIENT
  Age: 82 Year
  Sex: Male
  Weight: 103 kg

DRUGS (12)
  1. PREVISCAN [Concomitant]
     Route: 048
  2. LASILIX [Concomitant]
     Active Substance: FUROSEMIDE
     Route: 048
  3. TRIATEC (RAMIPRIL) [Concomitant]
     Active Substance: RAMIPRIL
     Route: 048
  4. TADENAN [Concomitant]
     Active Substance: PYGEUM
     Route: 048
  5. OXYCODONE [Suspect]
     Active Substance: OXYCODONE
     Indication: PAIN
     Route: 048
     Dates: start: 201809, end: 20181005
  6. NEFOPAM [Suspect]
     Active Substance: NEFOPAM
     Indication: PAIN
     Route: 042
     Dates: start: 201809, end: 20181005
  7. CARDENSIEL [Concomitant]
     Active Substance: BISOPROLOL FUMARATE
     Route: 048
  8. INVANZ [Suspect]
     Active Substance: ERTAPENEM SODIUM
     Indication: URINARY TRACT INFECTION
     Dosage: 2 DOSAGE FORM, QD
     Route: 042
     Dates: start: 20180924, end: 20181008
  9. IMIPENEM AND CILASTATIN [Suspect]
     Active Substance: CILASTATIN SODIUM\IMIPENEM
     Indication: URINARY TRACT INFECTION
     Dosage: 4 DOSAGE FORM, QD
     Route: 042
     Dates: start: 20180921, end: 20180923
  10. TAHOR [Concomitant]
     Active Substance: ATORVASTATIN CALCIUM
     Route: 048
  11. EUPANTOL [Concomitant]
     Active Substance: PANTOPRAZOLE SODIUM
     Route: 048
  12. OXYNORMORO [Suspect]
     Active Substance: OXYCODONE HYDROCHLORIDE
     Indication: PAIN
     Route: 048
     Dates: start: 201809, end: 20181005

REACTIONS (1)
  - Epileptic encephalopathy [Recovered/Resolved]

NARRATIVE: CASE EVENT DATE: 20181005
